FAERS Safety Report 18055826 (Version 2)
Quarter: 2020Q3

REPORT INFORMATION
  Report Type: Report from Study
  Country: US (occurrence: US)
  Receive Date: 20200722
  Receipt Date: 20200730
  Transmission Date: 20201103
  Serious: Yes (Death, Hospitalization)
  Sender: FDA-Public Use
  Company Number: US-ACTELION-A-US2020-207198

PATIENT
  Age: 83 Year
  Sex: Female

DRUGS (13)
  1. CALCITRIOL. [Concomitant]
     Active Substance: CALCITRIOL
  2. FUROSEMIDE. [Concomitant]
     Active Substance: FUROSEMIDE
     Dosage: 60 MG, TID
     Route: 048
     Dates: start: 201908
  3. LEVOTHYROXINE. [Concomitant]
     Active Substance: LEVOTHYROXINE
  4. TADALAFIL. [Concomitant]
     Active Substance: TADALAFIL
     Dosage: 40 MG, QD
     Route: 048
     Dates: start: 201905
  5. METOLAZONE. [Concomitant]
     Active Substance: METOLAZONE
     Dosage: 2.5 MG, QD
     Route: 048
     Dates: start: 201806
  6. COLCHICINE. [Concomitant]
     Active Substance: COLCHICINE
  7. OPSUMIT [Suspect]
     Active Substance: MACITENTAN
     Indication: PULMONARY HYPERTENSION
     Dosage: 10 MG, QD
     Route: 048
     Dates: start: 201808, end: 20200720
  8. FERROUS SULFATE. [Concomitant]
     Active Substance: FERROUS SULFATE
  9. ESTRADIOL. [Concomitant]
     Active Substance: ESTRADIOL
  10. CARVEDILOL. [Concomitant]
     Active Substance: CARVEDILOL
  11. CINACALCET. [Concomitant]
     Active Substance: CINACALCET
  12. VITAMIN D3 [Concomitant]
     Active Substance: CHOLECALCIFEROL
  13. OXYGEN. [Concomitant]
     Active Substance: OXYGEN

REACTIONS (9)
  - Pulmonary hypertension [Fatal]
  - Acute kidney injury [Recovered/Resolved]
  - Weight increased [Recovered/Resolved]
  - Disease progression [Fatal]
  - Fall [Recovered/Resolved]
  - Hyponatraemia [Recovered/Resolved]
  - Oedema peripheral [Recovered/Resolved]
  - Cardiac failure congestive [Recovering/Resolving]
  - Dyspnoea [Recovered/Resolved]

NARRATIVE: CASE EVENT DATE: 20200622
